FAERS Safety Report 15628272 (Version 1)
Quarter: 2018Q4

REPORT INFORMATION
  Report Type: Spontaneous
  Country: DE (occurrence: DE)
  Receive Date: 20181116
  Receipt Date: 20181116
  Transmission Date: 20190205
  Serious: Yes (Death, Hospitalization)
  Sender: FDA-Public Use
  Company Number: PHHY2018DE155821

PATIENT
  Age: 88 Year
  Sex: Female

DRUGS (2)
  1. TRIMETHOPRIM. [Concomitant]
     Active Substance: TRIMETHOPRIM
     Indication: PRODUCT USED FOR UNKNOWN INDICATION
     Dosage: UNK
     Route: 065
  2. METHOTREXATE. [Suspect]
     Active Substance: METHOTREXATE
     Indication: RHEUMATIC DISORDER
     Dosage: 10 MG, QD OR QW
     Route: 065
     Dates: start: 20180309, end: 20180316

REACTIONS (5)
  - Diarrhoea [Unknown]
  - General physical condition decreased [Unknown]
  - Sepsis [Fatal]
  - Pyrexia [Unknown]
  - Overdose [Unknown]

NARRATIVE: CASE EVENT DATE: 20180309
